FAERS Safety Report 7273539-1 (Version None)
Quarter: 2011Q1

REPORT INFORMATION
  Report Type: 
  Country: None (occurrence: None)
  Receive Date: 20110203
  Receipt Date: 20100920
  Transmission Date: 20110831
  Serious: No
  Sender: FDA-Public Use
  Company Number: US-ABBOTT-10P-163-0672737-00

PATIENT
  Sex: Female
  Weight: 52.664 kg

DRUGS (5)
  1. FLEXERIL [Concomitant]
     Indication: FIBROMYALGIA
     Dosage: AT HOUR OF SLEEP
     Route: 048
  2. UNKNOWN OTHER MEDICATION [Concomitant]
     Indication: PRODUCT USED FOR UNKNOWN INDICATION
  3. VITAMIN D [Concomitant]
     Indication: PRODUCT USED FOR UNKNOWN INDICATION
     Route: 048
  4. SYNTHROID [Suspect]
     Indication: HYPOTHYROIDISM
     Dosage: IN MORNING ON EMPTY STOMACH
     Route: 048
  5. SYNTHROID [Suspect]
     Dosage: IN MORNING ON EMPTY STOMACH

REACTIONS (2)
  - BLOOD THYROID STIMULATING HORMONE DECREASED [None]
  - BLOOD THYROID STIMULATING HORMONE INCREASED [None]
